FAERS Safety Report 8382919 (Version 2)
Quarter: 2012Q4

REPORT INFORMATION
  Report Type: 
  Country: US (occurrence: US)
  Receive Date: 20120201
  Receipt Date: 20120927
  Transmission Date: 20130627
  Serious: Yes (Death, Other)
  Sender: FDA-Public Use
  Company Number: US-ROCHE-1034554

PATIENT
  Sex: Female

DRUGS (9)
  1. AVASTIN [Suspect]
     Indication: BREAST CANCER FEMALE
     Route: 065
     Dates: start: 20061201
  2. AVASTIN [Suspect]
     Route: 065
     Dates: start: 20061222
  3. AVASTIN [Suspect]
     Route: 065
     Dates: start: 20070112
  4. AVASTIN [Suspect]
     Route: 065
     Dates: start: 20070126
  5. AVASTIN [Suspect]
     Route: 065
     Dates: start: 20070209
  6. HERCEPTIN [Suspect]
     Indication: PRODUCT USED FOR UNKNOWN INDICATION
     Route: 065
  7. XELODA [Suspect]
     Indication: PRODUCT USED FOR UNKNOWN INDICATION
     Route: 065
  8. ARIMIDEX [Concomitant]
  9. TAXOTERE [Concomitant]
     Route: 065

REACTIONS (3)
  - Death [Fatal]
  - Ascites [Unknown]
  - Disease progression [Unknown]
